FAERS Safety Report 4605558-5 (Version None)
Quarter: 2005Q1

REPORT INFORMATION
  Report Type: 
  Country: None (occurrence: None)
  Receive Date: 20050310
  Receipt Date: 20040930
  Transmission Date: 20050727
  Serious: No
  Sender: FDA-Public Use
  Company Number: US-BRISTOL-MYERS SQUIBB COMPANY-12722385

PATIENT
  Age: 28 Year
  Sex: Male

DRUGS (1)
  1. MONISTAT [Suspect]
     Dosage: ROUTE OF ADMIN: PENIS
     Route: 061
     Dates: start: 20040929, end: 20040929

REACTIONS (3)
  - GENITAL BURNING SENSATION [None]
  - GENITAL PAIN [None]
  - OEDEMA GENITAL [None]
